FAERS Safety Report 6430474-6 (Version None)
Quarter: 2009Q4

REPORT INFORMATION
  Report Type: 
  Country: None (occurrence: None)
  Receive Date: 20091106
  Receipt Date: 20091030
  Transmission Date: 20100525
  Serious: Yes (Other)
  Sender: FDA-Public Use
  Company Number: US-ELI_LILLY_AND_COMPANY-US200910008060

PATIENT
  Sex: Male

DRUGS (1)
  1. HUMALOG [Suspect]

REACTIONS (4)
  - BLINDNESS [None]
  - BLOOD GLUCOSE DECREASED [None]
  - CATARACT [None]
  - WRONG TECHNIQUE IN DRUG USAGE PROCESS [None]
